FAERS Safety Report 5393878-9 (Version None)
Quarter: 2007Q3

REPORT INFORMATION
  Report Type: 
  Country: None (occurrence: None)
  Receive Date: 20070723
  Receipt Date: 20070712
  Transmission Date: 20080115
  Serious: Yes (Hospitalization)
  Sender: FDA-Public Use
  Company Number: B0479684A

PATIENT
  Age: 78 Year
  Sex: Female

DRUGS (3)
  1. NARAMIG [Suspect]
     Indication: MIGRAINE
     Route: 048
     Dates: start: 20061001, end: 20061115
  2. KARDEGIC [Concomitant]
  3. VASTAREL [Concomitant]

REACTIONS (3)
  - ABDOMINAL PAIN [None]
  - COLITIS ISCHAEMIC [None]
  - RECTAL HAEMORRHAGE [None]
